FAERS Safety Report 5655705-1 (Version None)
Quarter: 2008Q1

REPORT INFORMATION
  Report Type: 
  Country: None (occurrence: None)
  Receive Date: 20080307
  Receipt Date: 20080229
  Transmission Date: 20080703
  Serious: Yes (Death)
  Sender: FDA-Public Use
  Company Number: FR-PFIZER INC-2008020813

PATIENT
  Sex: Female
  Weight: 41 kg

DRUGS (8)
  1. SU-011,248 [Suspect]
     Indication: BREAST CANCER
     Route: 048
     Dates: start: 20071222, end: 20080201
  2. SU-011,248 [Suspect]
     Route: 048
     Dates: start: 20080208, end: 20080201
  3. CAPECITABINE [Suspect]
     Indication: BREAST CANCER
     Route: 048
     Dates: start: 20071222, end: 20080201
  4. FOSAMAX [Concomitant]
     Route: 048
     Dates: start: 19970101, end: 20080201
  5. LEVOTHYROX [Concomitant]
     Route: 048
     Dates: start: 19970101, end: 20080201
  6. GAVISCON [Concomitant]
     Route: 048
     Dates: start: 20050101, end: 20080201
  7. LYSANXIA [Concomitant]
     Route: 048
     Dates: start: 20070601, end: 20080201
  8. ZOLPIDEM [Concomitant]
     Route: 048
     Dates: start: 19970101, end: 20080201

REACTIONS (5)
  - ABDOMINAL PAIN [None]
  - ASTHENIA [None]
  - DEATH [None]
  - NEUTROPENIA [None]
  - THROMBOCYTOPENIA [None]
